FAERS Safety Report 9669471 (Version 2)
Quarter: 2013Q4

REPORT INFORMATION
  Report Type: Spontaneous
  Country: US (occurrence: US)
  Receive Date: 20131105
  Receipt Date: 20131119
  Transmission Date: 20140711
  Serious: Yes (Other)
  Sender: FDA-Public Use
  Company Number: US-PFIZER INC-2013310752

PATIENT
  Age: 68 Year
  Sex: Female
  Weight: 77.1 kg

DRUGS (8)
  1. XALATAN [Suspect]
     Indication: GLAUCOMA
     Dosage: UNK, (IN EACH EYE) 1X/DAY
     Route: 047
     Dates: start: 2008
  2. XALATAN [Suspect]
     Route: 047
  3. XALATAN [Suspect]
     Route: 047
  4. NEXIUM [Concomitant]
     Dosage: UNK
  5. GABAPENTIN [Concomitant]
     Dosage: UNK
  6. ESTRADIOL [Concomitant]
     Dosage: 1 MG, UNK
  7. PAROXETINE [Concomitant]
     Dosage: 20 MG, UNK
  8. TYLENOL [Concomitant]
     Dosage: UNK

REACTIONS (5)
  - Cardiac disorder [Unknown]
  - Heart rate irregular [Unknown]
  - Eye irritation [Unknown]
  - Eye disorder [Unknown]
  - Feeling abnormal [Unknown]
